FAERS Safety Report 20686214 (Version 1)
Quarter: 2022Q2

REPORT INFORMATION
  Report Type: Spontaneous
  Country: FR (occurrence: FR)
  Receive Date: 20220407
  Receipt Date: 20220407
  Transmission Date: 20220721
  Serious: No
  Sender: FDA-Public Use
  Company Number: FO-VIG-JAZZPHARMA-001-V04

PATIENT

DRUGS (1)
  1. SUNOSI [Suspect]
     Active Substance: SOLRIAMFETOL
     Indication: Sleep apnoea syndrome
     Dosage: 37.5 MILLIGRAM

REACTIONS (3)
  - Tachycardia [Unknown]
  - Palpitations [Unknown]
  - Off label use [Unknown]
